FAERS Safety Report 25771604 (Version 1)
Quarter: 2025Q3

REPORT INFORMATION
  Report Type: Spontaneous
  Country: US (occurrence: US)
  Receive Date: 20250908
  Receipt Date: 20250908
  Transmission Date: 20251020
  Serious: No
  Sender: DOMPE FARMACEUTICI
  Company Number: US-FARMAPROD-202505-1457

PATIENT
  Sex: Female

DRUGS (28)
  1. OXERVATE [Suspect]
     Active Substance: CENEGERMIN-BKBJ
     Indication: Neurotrophic keratopathy
     Route: 047
     Dates: start: 20250422
  2. OXERVATE [Suspect]
     Active Substance: CENEGERMIN-BKBJ
  3. PREDNISONE [Concomitant]
     Active Substance: PREDNISONE
  4. PREDNISOLONE [Concomitant]
     Active Substance: PREDNISOLONE
  5. OMEPRAZOLE [Concomitant]
     Active Substance: OMEPRAZOLE
  6. PATADAY ONCE DAILY RELIEF [Concomitant]
     Active Substance: OLOPATADINE HYDROCHLORIDE
  7. MUPIROCIN [Concomitant]
     Active Substance: MUPIROCIN
  8. MINOCYCLINE HYDROCHLORIDE [Concomitant]
     Active Substance: MINOCYCLINE HYDROCHLORIDE
  9. METROGEL [Concomitant]
     Active Substance: METRONIDAZOLE
  10. METRONIDAZOLE [Concomitant]
     Active Substance: METRONIDAZOLE
  11. AUGMENTIN [Concomitant]
     Active Substance: AMOXICILLIN\CLAVULANATE POTASSIUM
  12. METHOCARBAMOL [Concomitant]
     Active Substance: METHOCARBAMOL
  13. VITAMIN B12 [Concomitant]
     Active Substance: CYANOCOBALAMIN
  14. LEVOFLOXACIN [Concomitant]
     Active Substance: LEVOFLOXACIN
  15. PREVACID [Concomitant]
     Active Substance: LANSOPRAZOLE
  16. SYNVISC-ONE [Concomitant]
     Active Substance: HYLAN G-F 20
  17. HYDROCHLOROTHIAZIDE [Concomitant]
     Active Substance: HYDROCHLOROTHIAZIDE
  18. SODIUM HYALURONATE [Concomitant]
     Active Substance: HYALURONATE SODIUM
  19. PREMARIN [Concomitant]
     Active Substance: ESTROGENS, CONJUGATED
  20. NEXIUM [Concomitant]
     Active Substance: ESOMEPRAZOLE MAGNESIUM
  21. ERYTHROMYCIN [Concomitant]
     Active Substance: ERYTHROMYCIN
  22. NEOMYCIN-POLYMIXIN-BACITRACIN [Concomitant]
  23. DEXAMETHASONE SODIUM PHOSPHATE [Concomitant]
     Active Substance: DEXAMETHASONE SODIUM PHOSPHATE
  24. CIPROFLOXACIN HYDROCHLORIDE [Concomitant]
     Active Substance: CIPROFLOXACIN HYDROCHLORIDE
  25. CEFTRIAXONE [Concomitant]
     Active Substance: CEFTRIAXONE
  26. CEFDINIR [Concomitant]
     Active Substance: CEFDINIR
  27. BREYNA [Concomitant]
     Active Substance: BUDESONIDE\FORMOTEROL FUMARATE
  28. TYLENOL EXTRA STRENGTH [Concomitant]
     Active Substance: ACETAMINOPHEN

REACTIONS (4)
  - Eye pain [Recovering/Resolving]
  - Foreign body sensation in eyes [Recovering/Resolving]
  - Dry eye [Recovering/Resolving]
  - Eye irritation [Not Recovered/Not Resolved]
